FAERS Safety Report 16173477 (Version 2)
Quarter: 2022Q2

REPORT INFORMATION
  Report Type: Report from Study
  Country: GB (occurrence: GB)
  Receive Date: 20190409
  Receipt Date: 20220620
  Transmission Date: 20220721
  Serious: Yes (Other)
  Sender: FDA-Public Use
  Company Number: GB-BRISTOL-MYERS SQUIBB COMPANY-BMS-2019-032003

PATIENT
  Age: 81 Year
  Sex: Male

DRUGS (2)
  1. ORENCIA [Suspect]
     Active Substance: ABATACEPT
     Indication: Rheumatoid arthritis
     Dosage: 125 MILLIGRAM, QWK
     Route: 058
     Dates: start: 20181018
  2. ORENCIA [Suspect]
     Active Substance: ABATACEPT
     Dosage: FREQUENCY: WEEKLY
     Route: 058
     Dates: start: 20181022

REACTIONS (5)
  - Memory impairment [Unknown]
  - Product dose omission issue [Unknown]
  - Pain in extremity [Unknown]
  - Gait inability [Unknown]
  - Hip fracture [Recovering/Resolving]
